FAERS Safety Report 9148839 (Version 7)
Quarter: 2014Q2

REPORT INFORMATION
  Report Type: Spontaneous
  Country: GB (occurrence: None)
  Receive Date: 20130130
  Receipt Date: 20140515
  Transmission Date: 20141212
  Serious: Yes (Other)
  Sender: FDA-Public Use
  Company Number: AUR-APL-2013-00949

PATIENT
  Age: 61 Year
  Sex: Male

DRUGS (10)
  1. SIMVASTATIN [Suspect]
     Indication: PRODUCT USED FOR UNKNOWN INDICATION
     Route: 048
     Dates: start: 2006
  2. CLOZARIL [Suspect]
     Indication: SCHIZOPHRENIA
     Dosage: UNKNOWN
     Dates: start: 20050225
  3. EZETIMIBE [Suspect]
     Indication: PRODUCT USED FOR UNKNOWN INDICATION
     Route: 048
     Dates: start: 2009
  4. ADCAL-D3 (LEKOVIT CA) [Concomitant]
  5. ALENDRONIC ACID (ALENDRONIC ACID) [Concomitant]
  6. CITALOPRAM (CITALOPRAM) [Concomitant]
  7. LANSOPRAZOL (LANSOPRAZOLE) [Concomitant]
  8. SENNA (SENNA ALEXANDRINA) [Concomitant]
  9. IRON (IRON) [Concomitant]
  10. PROCYCLIDINE (PROCYCLIDINE) [Concomitant]

REACTIONS (1)
  - Thrombocytopenia [None]
